FAERS Safety Report 6025886-9 (Version None)
Quarter: 2008Q4

REPORT INFORMATION
  Report Type: 
  Country: None (occurrence: None)
  Receive Date: 20081223
  Receipt Date: 20081215
  Transmission Date: 20090506
  Serious: Yes (Other)
  Sender: FDA-Public Use
  Company Number: CHPA2008US22450

PATIENT
  Age: 85 Year
  Sex: Female
  Weight: 54.4 kg

DRUGS (1)
  1. ASCRIPTIN BUFFERED (NCH) (ACETYLSALICYLIC ACID) TABLET [Suspect]
     Indication: ARTHRITIS
     Dosage: 1 DF, ONCE/SINGLE, ORAL
     Route: 048
     Dates: start: 19980101

REACTIONS (2)
  - GLAUCOMA [None]
  - INTENTIONAL DRUG MISUSE [None]
